FAERS Safety Report 6147783-0 (Version None)
Quarter: 2009Q2

REPORT INFORMATION
  Report Type: 
  Country: None (occurrence: None)
  Receive Date: 20090402
  Receipt Date: 20090212
  Transmission Date: 20091009
  Serious: No
  Sender: FDA-Public Use
  Company Number: 1000003937

PATIENT
  Age: 60 Year
  Sex: Female

DRUGS (6)
  1. BYSTOLIC [Suspect]
     Indication: TACHYCARDIA
     Dosage: 5 MG (5MG, 1 IN 1 D) ORAL
     Route: 048
     Dates: start: 20090205
  2. LOVAZA [Concomitant]
  3. TRICOR [Concomitant]
  4. LUNESTA [Concomitant]
  5. VITAMIN D [Concomitant]
  6. CALCIUM [Concomitant]

REACTIONS (4)
  - ABDOMINAL DISTENSION [None]
  - ERUCTATION [None]
  - FATIGUE [None]
  - INSOMNIA [None]
